FAERS Safety Report 23210595 (Version 4)
Quarter: 2023Q4

REPORT INFORMATION
  Report Type: Spontaneous
  Country: NZ (occurrence: NZ)
  Receive Date: 20231121
  Receipt Date: 20231213
  Transmission Date: 20240110
  Serious: Yes (Other)
  Sender: FDA-Public Use
  Company Number: NZ-BAYER-2023A161567

PATIENT
  Age: 31 Year
  Sex: Female

DRUGS (1)
  1. MIRENA [Suspect]
     Active Substance: LEVONORGESTREL
     Dosage: 20?G/DAY
     Route: 015
     Dates: start: 20191112, end: 20231109

REACTIONS (3)
  - Device breakage [None]
  - Device issue [None]
  - Complication of device removal [None]

NARRATIVE: CASE EVENT DATE: 20231110
